FAERS Safety Report 8134151-5 (Version None)
Quarter: 2012Q1

REPORT INFORMATION
  Report Type: 
  Country: None (occurrence: None)
  Receive Date: 20120213
  Receipt Date: 20120213
  Transmission Date: 20120608
  Serious: Yes (Hospitalization)
  Sender: FDA-Public Use
  Company Number: None

PATIENT
  Sex: Male

DRUGS (1)
  1. REVATIO [Suspect]
     Dosage: 20 MG TID PO
     Route: 048
     Dates: start: 20111006, end: 20111219

REACTIONS (1)
  - LIVER TRANSPLANT [None]
